FAERS Safety Report 5280127-5 (Version None)
Quarter: 2007Q1

REPORT INFORMATION
  Report Type: 
  Country: None (occurrence: None)
  Receive Date: 20061229
  Receipt Date: 20061005
  Transmission Date: 20070707
  Serious: Yes (Other)
  Sender: FDA-Public Use
  Company Number: 2006UW19430

PATIENT
  Age: 76 Year
  Sex: Female
  Weight: 73.028 kg

DRUGS (4)
  1. CRESTOR [Suspect]
     Indication: BLOOD CHOLESTEROL INCREASED
     Dosage: 10 MG PO
     Route: 048
     Dates: start: 20060201
  2. LOTREL [Concomitant]
  3. DIOVAN [Concomitant]
  4. CELEBREX [Concomitant]

REACTIONS (3)
  - MUSCULAR WEAKNESS [None]
  - PAIN IN EXTREMITY [None]
  - SKIN DISCOLOURATION [None]
